FAERS Safety Report 25808887 (Version 1)
Quarter: 2025Q3

REPORT INFORMATION
  Report Type: Spontaneous
  Country: GB (occurrence: GB)
  Receive Date: 20250916
  Receipt Date: 20250916
  Transmission Date: 20251021
  Serious: Yes (Other)
  Sender: MYLAN
  Company Number: GB-MHRA-TPP30004059C10739610YC1756905879975

PATIENT
  Age: 78 Year
  Sex: Female
  Weight: 62 kg

DRUGS (28)
  1. GABAPENTIN [Suspect]
     Active Substance: GABAPENTIN
     Indication: Ill-defined disorder
  2. GABAPENTIN [Concomitant]
     Active Substance: GABAPENTIN
     Indication: Ill-defined disorder
     Dosage: UNK UNK, TID (TO BE TAKEN THREE TIMES DAILY)
     Dates: start: 20250813
  3. Biatain silicone [Concomitant]
     Indication: Ill-defined disorder
  4. POTASSIUM BICARBONATE\POTASSIUM CHLORIDE [Concomitant]
     Active Substance: POTASSIUM BICARBONATE\POTASSIUM CHLORIDE
     Indication: Ill-defined disorder
     Dosage: 2 DOSAGE FORM, BID (TAKE TWO TWICE DAILY FOR 3 DAYS)
     Dates: start: 20250826, end: 20250829
  5. CLOTRIMAZOLE [Concomitant]
     Active Substance: CLOTRIMAZOLE
     Indication: Ill-defined disorder
  6. Alginate [Concomitant]
     Indication: Ill-defined disorder
     Dosage: UNK UNK, TID (10ML-20ML 3 TIMES/DAY 30 MINS BEFORE MEALS)
     Dates: start: 20250826
  7. Micralax [Concomitant]
     Indication: Ill-defined disorder
  8. AMLODIPINE [Concomitant]
     Active Substance: AMLODIPINE BESYLATE
     Indication: Ill-defined disorder
     Dosage: 1 DOSAGE FORM, QD (TAKE ONE DAILY)
     Dates: start: 20250212
  9. Calci d [Concomitant]
     Indication: Ill-defined disorder
     Dosage: 1 DOSAGE FORM, QD (CHEW ONE TABLET ONCE DAILY)
     Dates: start: 20250212
  10. CLOBETASOL PROPIONATE [Concomitant]
     Active Substance: CLOBETASOL PROPIONATE
     Indication: Ill-defined disorder
  11. HYDROCORTISONE [Concomitant]
     Active Substance: HYDROCORTISONE
     Indication: Ill-defined disorder
     Dosage: UNK UNK, BID (APPLY TWICE DAILY)
     Dates: start: 20250212
  12. SERTRALINE [Concomitant]
     Active Substance: SERTRALINE HYDROCHLORIDE
     Indication: Ill-defined disorder
     Dosage: 1 DOSAGE FORM, AM (TAKE ONE IN THE MORNING)
     Dates: start: 20250212
  13. ATORVASTATIN [Concomitant]
     Active Substance: ATORVASTATIN
     Indication: Ill-defined disorder
     Dosage: 1 DOSAGE FORM, PM (TAKE ONE DAILY AT NIGHTS)
     Dates: start: 20250721
  14. CLOPIDOGREL [Concomitant]
     Active Substance: CLOPIDOGREL BISULFATE
     Indication: Ill-defined disorder
     Dosage: 1 DOSAGE FORM, AM (TAKE ONE ONCE DAILY MORNING)
     Dates: start: 20250721
  15. CHOLECALCIFEROL [Concomitant]
     Active Substance: CHOLECALCIFEROL
     Indication: Ill-defined disorder
     Dosage: 1 DOSAGE FORM, AM (TAKE ONE DAILY IN THE MORNING)
     Dates: start: 20250721
  16. CYANOCOBALAMIN [Concomitant]
     Active Substance: CYANOCOBALAMIN
     Indication: Ill-defined disorder
     Dosage: 2 DOSAGE FORM, AM (TAKE 2 IN THE MORNING)
     Dates: start: 20250721
  17. DALTEPARIN [Concomitant]
     Active Substance: DALTEPARIN
     Indication: Ill-defined disorder
     Dosage: UNK UNK, QD (GIVE 1 SUB CUT DAILY AT 1800 STOP ON DISCHARGE ...)
     Dates: start: 20250721
  18. LANSOPRAZOLE [Concomitant]
     Active Substance: LANSOPRAZOLE
     Indication: Ill-defined disorder
     Dosage: 1 DOSAGE FORM, AM (TAKE ONE ONCE DAILY MORNING)
     Dates: start: 20250721
  19. POLYETHYLENE GLYCOLS [Concomitant]
     Active Substance: POLYETHYLENE GLYCOLS
     Indication: Ill-defined disorder
     Dosage: 1 DOSAGE FORM, QD (TAKE ONE ONCE DAILY PRN)
     Dates: start: 20250721, end: 20250728
  20. ACETAMINOPHEN [Concomitant]
     Active Substance: ACETAMINOPHEN
     Indication: Ill-defined disorder
     Dosage: 2 DOSAGE FORM, QID (TAKE TWO 4 TIMES/DAY PRN)
     Dates: start: 20250721
  21. SENNA [Concomitant]
     Active Substance: SENNOSIDES
     Indication: Ill-defined disorder
     Dosage: 2 DOSAGE FORM, PM (TAKE 2 AT NIGHT)
     Dates: start: 20250721
  22. LACTULOSE [Concomitant]
     Active Substance: LACTULOSE
     Indication: Ill-defined disorder
     Dosage: 15 MILLILITER, BID (15ML TWICE DAILY)
     Dates: start: 20250728
  23. BACLOFEN [Concomitant]
     Active Substance: BACLOFEN
     Indication: Ill-defined disorder
     Dosage: UNK UNK, TID (TAKE 2.5MG/2.5ML THREE TIMES DAILY)
     Dates: start: 20250730
  24. CODEINE PHOSPHATE [Concomitant]
     Active Substance: CODEINE PHOSPHATE
     Indication: Ill-defined disorder
     Dosage: 1 DOSAGE FORM, QID (TAKE ONE 4 TIMES/DAY AS NEEDED FOR PAIN)
     Dates: start: 20250801
  25. IBUPROFEN [Concomitant]
     Active Substance: IBUPROFEN
     Indication: Ill-defined disorder
     Dosage: UNK UNK, TID (APPLY 3 TIMES/DAY TO RIGHT ARM INCLUDING WRISTS...)
     Dates: start: 20250801
  26. DOCUSATE SODIUM [Concomitant]
     Active Substance: DOCUSATE SODIUM
     Indication: Ill-defined disorder
     Dosage: 1 DOSAGE FORM, QID (TAKE ONE 4 TIMES/DAY AS NEEDED)
     Dates: start: 20250807
  27. Zerobase [Concomitant]
     Indication: Ill-defined disorder
  28. PREGABALIN [Concomitant]
     Active Substance: PREGABALIN
     Indication: Ill-defined disorder
     Dosage: 1 DOSAGE FORM, BID (TAKE ONE TWICE DAILY)
     Dates: start: 20250903

REACTIONS (2)
  - Depressed level of consciousness [Unknown]
  - Somnolence [Recovered/Resolved]
